FAERS Safety Report 9233443 (Version 1)
Quarter: 2013Q2

REPORT INFORMATION
  Report Type: Spontaneous
  Country: US (occurrence: US)
  Receive Date: 20130416
  Receipt Date: 20130416
  Transmission Date: 20140414
  Serious: No
  Sender: FDA-Public Use
  Company Number: US-BANPHARM-20120023

PATIENT
  Age: 58 Year
  Sex: Male
  Weight: 72.72 kg

DRUGS (2)
  1. ALEVE LIQUID GELS 220 MG [Suspect]
     Indication: HEADACHE
     Route: 048
     Dates: start: 2011, end: 20120601
  2. TYLENOL [Concomitant]
     Route: 048

REACTIONS (1)
  - Dizziness [Not Recovered/Not Resolved]
